FAERS Safety Report 8815379 (Version 1)
Quarter: 2012Q4

REPORT INFORMATION
  Report Type: 
  Country: US (occurrence: US)
  Receive Date: 20120928
  Receipt Date: 20120928
  Transmission Date: 20130627
  Serious: No
  Sender: FDA-Public Use
  Company Number: US-PFIZER INC-2012237758

PATIENT
  Age: 81 Year
  Sex: Male
  Weight: 72.56 kg

DRUGS (3)
  1. VIAGRA [Suspect]
     Indication: ERECTILE DYSFUNCTION
     Dosage: 50 mg, as needed
  2. AMBIEN [Concomitant]
     Indication: SLEEP DISORDER
     Dosage: 5 mg, as needed (may be two to three times a week)
  3. CLOZAPINE [Concomitant]
     Indication: SLEEP DISORDER
     Dosage: UNK

REACTIONS (4)
  - Gastrooesophageal reflux disease [Unknown]
  - Heart rate decreased [Unknown]
  - Hypotension [Unknown]
  - Therapeutic response unexpected [Unknown]
